FAERS Safety Report 4281668-X (Version None)
Quarter: 2004Q1

REPORT INFORMATION
  Report Type: 
  Country: None (occurrence: None)
  Receive Date: 20040120
  Receipt Date: 20031006
  Transmission Date: 20041129
  Serious: No
  Sender: FDA-Public Use
  Company Number: 2003-10-2570

PATIENT

DRUGS (1)
  1. CLARINEX [Suspect]
     Indication: SEASONAL ALLERGY
     Dosage: ORAL
     Route: 048

REACTIONS (1)
  - EPISTAXIS [None]
